FAERS Safety Report 15958087 (Version 11)
Quarter: 2019Q4

REPORT INFORMATION
  Report Type: Report from Study
  Country: US (occurrence: US)
  Receive Date: 20190213
  Receipt Date: 20191015
  Transmission Date: 20200122
  Serious: Yes (Hospitalization)
  Sender: FDA-Public Use
  Company Number: US-ACTELION-A-NJ2019-186235

PATIENT
  Age: 74 Year
  Sex: Female
  Weight: 105.67 kg

DRUGS (6)
  1. UPTRAVI [Suspect]
     Active Substance: SELEXIPAG
     Dosage: 400 MCG, BID
     Route: 048
  2. ELIQUIS [Concomitant]
     Active Substance: APIXABAN
  3. LASIX [Concomitant]
     Active Substance: FUROSEMIDE
  4. UPTRAVI [Suspect]
     Active Substance: SELEXIPAG
     Indication: PULMONARY ARTERIAL HYPERTENSION
     Dosage: 800 MCG, BID
     Route: 048
  5. UPTRAVI [Suspect]
     Active Substance: SELEXIPAG
     Dosage: 600 MCG, BID
     Route: 048
  6. UPTRAVI [Suspect]
     Active Substance: SELEXIPAG
     Dosage: 200 MCG, BID
     Route: 048

REACTIONS (18)
  - Transfusion [Unknown]
  - Pain in extremity [Recovered/Resolved]
  - Fall [Unknown]
  - Breath sounds abnormal [Unknown]
  - Musculoskeletal pain [Recovering/Resolving]
  - Chest discomfort [Unknown]
  - Dyspnoea [Unknown]
  - Back pain [Recovering/Resolving]
  - Pneumonia [Unknown]
  - Head injury [Unknown]
  - Pain [Unknown]
  - Mouth haemorrhage [Unknown]
  - Headache [Unknown]
  - Dental operation [Unknown]
  - Incorrect dose administered [Unknown]
  - Sleep disorder [Unknown]
  - Arthralgia [Recovered/Resolved]
  - Asthenia [Unknown]

NARRATIVE: CASE EVENT DATE: 201903
